FAERS Safety Report 9929726 (Version 2)
Quarter: 2014Q3

REPORT INFORMATION
  Report Type: Spontaneous
  Country: US (occurrence: US)
  Receive Date: 20140227
  Receipt Date: 20140711
  Transmission Date: 20150326
  Serious: Yes (Other)
  Sender: FDA-Public Use
  Company Number: US-PFIZER INC-2014055465

PATIENT
  Age: 75 Year
  Sex: Male

DRUGS (3)
  1. CELEBREX [Suspect]
     Active Substance: CELECOXIB
     Dosage: 200 MG, DAILY
  2. HUMALOG [Concomitant]
     Active Substance: INSULIN LISPRO
     Dosage: U100
  3. LANTUS [Concomitant]
     Active Substance: INSULIN GLARGINE
     Dosage: U100

REACTIONS (2)
  - Cardiac disorder [Unknown]
  - Diabetes mellitus [Unknown]
